FAERS Safety Report 5385580-4 (Version None)
Quarter: 2007Q3

REPORT INFORMATION
  Report Type: 
  Country: None (occurrence: None)
  Receive Date: 20070710
  Receipt Date: 20070625
  Transmission Date: 20080115
  Serious: Yes (Other)
  Sender: FDA-Public Use
  Company Number: 2007EU001170

PATIENT
  Age: 68 Year
  Sex: Female
  Weight: 69 kg

DRUGS (9)
  1. VESICARE [Suspect]
     Indication: INCONTINENCE
     Dosage: 5 MG, UID/QD, ORAL
     Route: 048
     Dates: start: 20070417, end: 20070601
  2. METHOTREXATE [Suspect]
     Indication: RHEUMATOID ARTHRITIS
     Dosage: 7.5 MG, WEEKLY, ORAL
     Route: 048
     Dates: start: 20060331, end: 20070601
  3. CO-AMOXICLAV (CLAVULANATE POTASSIUM) [Concomitant]
  4. OXYCONTIN [Concomitant]
  5. SIMVASTATIN [Concomitant]
  6. ATENOLOL [Concomitant]
  7. ESCITALOPRAM OXALATE [Concomitant]
  8. OMEPRAZOLE [Concomitant]
  9. HYDROXYCHLOROQUINE SULFATE [Concomitant]

REACTIONS (1)
  - LIVER FUNCTION TEST ABNORMAL [None]
